FAERS Safety Report 9820946 (Version 2)
Quarter: 2014Q1

REPORT INFORMATION
  Report Type: Spontaneous
  Country: US (occurrence: US)
  Receive Date: 20140116
  Receipt Date: 20140116
  Transmission Date: 20141002
  Serious: No
  Sender: FDA-Public Use
  Company Number: US-MYLANLABS-2013S1025514

PATIENT
  Age: 59 Year
  Sex: Male
  Weight: 102.51 kg

DRUGS (6)
  1. VALSARTAN AND HYDROCHLOROTHIAZIDE TABLETS [Suspect]
     Indication: BLOOD PRESSURE INCREASED
     Dosage: 160MG/12.5MG
     Route: 048
     Dates: start: 20130814, end: 20130817
  2. VALSARTAN AND HYDROCHLOROTHIAZIDE TABLETS [Suspect]
     Indication: HYPERTENSION
     Dosage: 160MG/12.5MG
     Route: 048
     Dates: start: 20130814, end: 20130817
  3. FLONASE /00908302/ [Concomitant]
  4. ALLEGRA [Concomitant]
  5. PRILOSEC [Concomitant]
  6. ASA [Concomitant]

REACTIONS (5)
  - Presyncope [Recovered/Resolved]
  - Blood pressure decreased [Recovered/Resolved]
  - Heart rate decreased [Recovered/Resolved]
  - Pulse pressure decreased [Recovered/Resolved]
  - Dizziness [Recovered/Resolved]
